FAERS Safety Report 21454841 (Version 2)
Quarter: 2022Q4

REPORT INFORMATION
  Report Type: Spontaneous
  Country: US (occurrence: US)
  Receive Date: 20221014
  Receipt Date: 20221116
  Transmission Date: 20230113
  Serious: No
  Sender: FDA-Public Use
  Company Number: US-BRISTOL-MYERS SQUIBB COMPANY-2022-119850

PATIENT
  Age: 78 Year
  Sex: Male

DRUGS (1)
  1. REVLIMID [Suspect]
     Active Substance: LENALIDOMIDE
     Indication: Anaemia
     Dosage: TAKE 1 CAPSULE BY ?MOUTH EVERY ?OTHER DAY FOR 20 ?DAYS ON ?FOLLOWED BY 7 ?DAYS OFF
     Route: 048

REACTIONS (2)
  - Rash [Unknown]
  - Intentional product use issue [Unknown]
